FAERS Safety Report 16077962 (Version 1)
Quarter: 2019Q1

REPORT INFORMATION
  Report Type: Spontaneous
  Country: US (occurrence: US)
  Receive Date: 20190315
  Receipt Date: 20190315
  Transmission Date: 20190418
  Serious: No
  Sender: FDA-Public Use
  Company Number: US-MILLICENT HOLDINGS LTD.-MILL20190156

PATIENT
  Sex: Female

DRUGS (3)
  1. FEMRING [Suspect]
     Active Substance: ESTRADIOL ACETATE
     Indication: HORMONE REPLACEMENT THERAPY
     Dosage: DOSE WAS REPORTED AS 0.01 (UNIT NOT REPORTED)
     Route: 067
     Dates: start: 20180627
  2. HORMONE REPLACEMENT THERAPY PILLS [Concomitant]
     Indication: PRODUCT USED FOR UNKNOWN INDICATION
     Dosage: UNKNOWN
     Route: 048
  3. FEMRING [Suspect]
     Active Substance: ESTRADIOL ACETATE
     Dosage: DOSE WAS REPORTED AS 0.01 (UNIT NOT REPORTED)
     Route: 067

REACTIONS (3)
  - Drug ineffective [Recovered/Resolved]
  - Hot flush [Recovered/Resolved]
  - Product use in unapproved indication [None]
